FAERS Safety Report 7202787-1 (Version None)
Quarter: 2010Q4

REPORT INFORMATION
  Report Type: 
  Country: None (occurrence: None)
  Receive Date: 20101229
  Receipt Date: 20100922
  Transmission Date: 20110411
  Serious: No
  Sender: FDA-Public Use
  Company Number: US-BAUSCH-2010BL004642

PATIENT
  Age: 72 Year
  Sex: Male

DRUGS (5)
  1. BESIVANCE [Suspect]
     Indication: POSTOPERATIVE CARE
     Route: 047
     Dates: start: 20100815, end: 20100913
  2. BESIVANCE [Suspect]
     Indication: OFF LABEL USE
     Route: 047
     Dates: start: 20100815, end: 20100913
  3. XIBROM [Concomitant]
     Indication: POSTOPERATIVE CARE
     Route: 047
  4. LOTEMAX [Concomitant]
     Indication: POSTOPERATIVE CARE
     Route: 047
  5. BEPREVE [Concomitant]
     Indication: PRODUCT USED FOR UNKNOWN INDICATION
     Route: 047

REACTIONS (1)
  - EYE PAIN [None]
